FAERS Safety Report 14453066 (Version 4)
Quarter: 2018Q1

REPORT INFORMATION
  Report Type: Report from Study
  Country: US (occurrence: US)
  Receive Date: 20180129
  Receipt Date: 20180327
  Transmission Date: 20180509
  Serious: Yes (Death, Hospitalization)
  Sender: FDA-Public Use
  Company Number: US-JNJFOC-20180130563

PATIENT
  Age: 82 Year
  Sex: Male

DRUGS (13)
  1. PROTONIX [Concomitant]
     Active Substance: PANTOPRAZOLE SODIUM
  2. ELIQUIS [Suspect]
     Active Substance: APIXABAN
     Indication: ATRIAL FIBRILLATION
     Route: 048
  3. ASPIRIN. [Suspect]
     Active Substance: ASPIRIN
     Indication: PRODUCT USED FOR UNKNOWN INDICATION
     Route: 065
  4. IMBRUVICA [Suspect]
     Active Substance: IBRUTINIB
     Indication: CHRONIC LYMPHOCYTIC LEUKAEMIA
     Route: 048
     Dates: start: 20170523
  5. CARVEDILOL. [Concomitant]
     Active Substance: CARVEDILOL
  6. LEUKERAN [Concomitant]
     Active Substance: CHLORAMBUCIL
  7. POTASSIUM CHLORIDE. [Concomitant]
     Active Substance: POTASSIUM CHLORIDE
  8. PRAVASTATIN. [Concomitant]
     Active Substance: PRAVASTATIN
  9. SYNTHROID [Concomitant]
     Active Substance: LEVOTHYROXINE SODIUM
  10. LASIX [Concomitant]
     Active Substance: FUROSEMIDE
  11. VENTOLIN [Concomitant]
     Active Substance: ALBUTEROL SULFATE
  12. CARAFATE [Concomitant]
     Active Substance: SUCRALFATE
  13. FLOMAX [Concomitant]
     Active Substance: TAMSULOSIN HYDROCHLORIDE

REACTIONS (4)
  - Fall [Unknown]
  - Subdural haematoma [Not Recovered/Not Resolved]
  - Influenza [Unknown]
  - Multiple organ dysfunction syndrome [Fatal]

NARRATIVE: CASE EVENT DATE: 20180116
